FAERS Safety Report 7787996-5 (Version None)
Quarter: 2011Q3

REPORT INFORMATION
  Report Type: 
  Country: None (occurrence: None)
  Receive Date: 20110930
  Receipt Date: 20110921
  Transmission Date: 20111222
  Serious: Yes (Other)
  Sender: FDA-Public Use
  Company Number: DK-AMGEN-DNKSP2011048673

PATIENT
  Age: 65 Year
  Sex: Male

DRUGS (3)
  1. PROLIA [Suspect]
     Indication: OSTEOPOROSIS
     Dosage: UNK
     Dates: start: 20110911
  2. SIMVASTATIN [Concomitant]
     Indication: BLOOD CHOLESTEROL
     Dosage: 10 MG, UNK
  3. HYPOLOC [Concomitant]
     Indication: HYPERTENSION
     Dosage: 0.5 MG, UNK

REACTIONS (7)
  - WHEEZING [None]
  - CHOKING [None]
  - HAEMOPTYSIS [None]
  - HYPERTENSION [None]
  - BACK PAIN [None]
  - TINNITUS [None]
  - DYSPNOEA [None]
